FAERS Safety Report 21531366 (Version 1)
Quarter: 2022Q4

REPORT INFORMATION
  Report Type: Spontaneous
  Country: US (occurrence: None)
  Receive Date: 20221028
  Receipt Date: 20221028
  Transmission Date: 20230112
  Serious: Yes (Life-Threatening, Other)
  Sender: FDA-Public Use
  Company Number: None

PATIENT
  Age: 73 Year
  Sex: Male
  Weight: 101 kg

DRUGS (1)
  1. ENOXAPARIN [Suspect]
     Active Substance: ENOXAPARIN
     Indication: Deep vein thrombosis
     Dosage: FREQUENCY : ONCE;?
     Dates: start: 20220524, end: 20220524

REACTIONS (6)
  - Syncope [None]
  - Face injury [None]
  - Subdural haematoma [None]
  - Deep vein thrombosis [None]
  - Pseudomeningocele [None]
  - Haemorrhage [None]

NARRATIVE: CASE EVENT DATE: 20220525
